FAERS Safety Report 5416708-5 (Version None)
Quarter: 2007Q3

REPORT INFORMATION
  Report Type: 
  Country: None (occurrence: None)
  Receive Date: 20070816
  Receipt Date: 20070814
  Transmission Date: 20080115
  Serious: Yes (Death, Life-Threatening, Hospitalization, Disabling, Other)
  Sender: FDA-Public Use
  Company Number: A0654632A

PATIENT
  Age: 22 Year
  Sex: Female

DRUGS (2)
  1. LAMICTAL [Suspect]
     Dosage: 50MG PER DAY
     Route: 048
  2. MULTIPLE MEDICATIONS [Concomitant]

REACTIONS (4)
  - AGRANULOCYTOSIS [None]
  - RENAL FAILURE [None]
  - SEPSIS [None]
  - WHITE BLOOD CELL COUNT DECREASED [None]
